FAERS Safety Report 23618874 (Version 1)
Quarter: 2024Q1

REPORT INFORMATION
  Report Type: Spontaneous
  Country: US (occurrence: US)
  Receive Date: 20240311
  Receipt Date: 20240311
  Transmission Date: 20240409
  Serious: Yes (Hospitalization, Other)
  Sender: FDA-Public Use
  Company Number: US-BRISTOL-MYERS SQUIBB COMPANY-2024-036140

PATIENT
  Age: 59 Year
  Sex: Male
  Weight: 83.01 kg

DRUGS (1)
  1. POMALYST [Suspect]
     Active Substance: POMALIDOMIDE
     Indication: Plasma cell myeloma
     Dosage: DAILY ON DAYS 1-21 OF 28 DAY CYCLE
     Route: 048
     Dates: start: 20230208

REACTIONS (3)
  - Musculoskeletal chest pain [Unknown]
  - Pneumonia [Recovering/Resolving]
  - Haematological infection [Recovering/Resolving]
